FAERS Safety Report 12233955 (Version 2)
Quarter: 2016Q2

REPORT INFORMATION
  Report Type: Spontaneous
  Country: IT (occurrence: IT)
  Receive Date: 20160404
  Receipt Date: 20160606
  Transmission Date: 20160815
  Serious: Yes (Other)
  Sender: FDA-Public Use
  Company Number: IT-ROCHE-1735837

PATIENT
  Age: 51 Year
  Sex: Female

DRUGS (5)
  1. HERCEPTIN [Suspect]
     Active Substance: TRASTUZUMAB
     Indication: BREAST CANCER STAGE IV
     Dosage: 150 MG - 1 VIAL FOR INTRAVENOUS USE
     Route: 042
     Dates: start: 20150417, end: 20151120
  2. PERJETA [Suspect]
     Active Substance: PERTUZUMAB
     Indication: BREAST CANCER STAGE IV
     Dosage: 420 MG - VIAL (GLASS) - 30 MG/ML - 1 VIAL
     Route: 042
     Dates: start: 20150417, end: 20151120
  3. TOPIRAMATE. [Concomitant]
     Active Substance: TOPIRAMATE
     Route: 048
  4. ENOXAPARIN SODIUM. [Concomitant]
     Active Substance: ENOXAPARIN SODIUM
     Indication: THROMBOSIS PROPHYLAXIS
     Dosage: 10,000 INTERNATIONAL UNITS, IN THOUSANDS.
     Route: 058
     Dates: start: 20151112
  5. DIBASE [Concomitant]
     Active Substance: CHOLECALCIFEROL
     Indication: VITAMIN D DEFICIENCY
     Dosage: 100000 INTERNATIONAL UNITS, IN THOUSANDS
     Route: 048

REACTIONS (3)
  - Hypokinesia [Recovered/Resolved]
  - Ejection fraction decreased [Recovered/Resolved]
  - Blood pressure systolic decreased [Recovered/Resolved]

NARRATIVE: CASE EVENT DATE: 20151207
